FAERS Safety Report 17360350 (Version 2)
Quarter: 2020Q1

REPORT INFORMATION
  Report Type: Report from Study
  Country: IE (occurrence: IE)
  Receive Date: 20200203
  Receipt Date: 20200205
  Transmission Date: 20200409
  Serious: Yes (Other)
  Sender: FDA-Public Use
  Company Number: NVSC2020IE022498

PATIENT
  Sex: Female

DRUGS (2)
  1. COSENTYX [Suspect]
     Active Substance: SECUKINUMAB
     Indication: PSORIATIC ARTHROPATHY
  2. COSENTYX [Suspect]
     Active Substance: SECUKINUMAB
     Indication: PSORIASIS
     Dosage: 300 MG, UNKNOWN
     Route: 058
     Dates: start: 20190729

REACTIONS (7)
  - Headache [Not Recovered/Not Resolved]
  - Meniere^s disease [Unknown]
  - Dizziness [Unknown]
  - Vomiting [Unknown]
  - Fatigue [Unknown]
  - Weight increased [Unknown]
  - Vertigo [Unknown]
